FAERS Safety Report 11293194 (Version 3)
Quarter: 2015Q4

REPORT INFORMATION
  Report Type: Report from Study
  Country: CO (occurrence: CO)
  Receive Date: 20150722
  Receipt Date: 20151010
  Transmission Date: 20160304
  Serious: Yes (Death, Other)
  Sender: FDA-Public Use
  Company Number: CO-BRISTOL-MYERS SQUIBB COMPANY-BMS-2015-045119

PATIENT
  Age: 82 Year
  Sex: Female

DRUGS (1)
  1. CETUXIMAB [Suspect]
     Active Substance: CETUXIMAB
     Indication: HEAD AND NECK CANCER
     Dosage: 400 UNK, UNK
     Route: 042
     Dates: start: 20150416

REACTIONS (4)
  - Radiation associated pain [Unknown]
  - Myocardial infarction [Fatal]
  - Mouth haemorrhage [Unknown]
  - Pain [Unknown]

NARRATIVE: CASE EVENT DATE: 20150609
